FAERS Safety Report 9171100 (Version 1)
Quarter: 2013Q1

REPORT INFORMATION
  Report Type: Report from Study
  Country: CA (occurrence: CA)
  Receive Date: 20130319
  Receipt Date: 20130319
  Transmission Date: 20140127
  Serious: Yes (Other)
  Sender: FDA-Public Use
  Company Number: CA-JNJFOC-20130306000

PATIENT
  Age: 53 Year
  Sex: Female
  Weight: 57.7 kg

DRUGS (4)
  1. REMICADE [Suspect]
     Indication: CROHN^S DISEASE
     Dosage: START DATE: POSSIBLY 2011
     Route: 042
  2. REMICADE [Suspect]
     Indication: CROHN^S DISEASE
     Route: 042
     Dates: start: 20130308
  3. METHOTREXATE [Concomitant]
     Route: 065
  4. PROMETRIUM [Concomitant]
     Route: 065

REACTIONS (1)
  - Abdominal operation [Recovering/Resolving]
